FAERS Safety Report 14048395 (Version 1)
Quarter: 2017Q4

REPORT INFORMATION
  Report Type: Report from Study
  Country: BR (occurrence: BR)
  Receive Date: 20171005
  Receipt Date: 20171005
  Transmission Date: 20180321
  Serious: Yes (Other)
  Sender: FDA-Public Use
  Company Number: PHHY2017BR144739

PATIENT
  Age: 69 Year
  Sex: Female
  Weight: 80 kg

DRUGS (1)
  1. DIOVAN HCT [Suspect]
     Active Substance: HYDROCHLOROTHIAZIDE\VALSARTAN
     Indication: HYPERTENSION
     Dosage: 1 DF (HYDROCHLOROTHIAZIDE 12.5 MG AND VALSARTAN 160MG), QD IN THE MORNING
     Route: 048
     Dates: start: 2006

REACTIONS (10)
  - Gait disturbance [Unknown]
  - Blood pressure increased [Recovered/Resolved]
  - Open fracture [Unknown]
  - Lower limb fracture [Unknown]
  - Ankle fracture [Unknown]
  - Fall [Unknown]
  - Ankle deformity [Unknown]
  - General physical health deterioration [Unknown]
  - Body height decreased [Unknown]
  - Pain in extremity [Unknown]

NARRATIVE: CASE EVENT DATE: 20110731
